FAERS Safety Report 4893325-7 (Version None)
Quarter: 2006Q1

REPORT INFORMATION
  Report Type: 
  Country: None (occurrence: None)
  Receive Date: 20060124
  Receipt Date: 20060112
  Transmission Date: 20060701
  Serious: Yes (Hospitalization, Other)
  Sender: FDA-Public Use
  Company Number: 2005134539

PATIENT
  Sex: Female

DRUGS (2)
  1. DEPO-PROVERA [Suspect]
     Indication: CONTRACEPTION
     Dosage: 150 MG (150 MG, TRIMESTRAL 1ST INJECTION); 150 MG (150 MG, TRIMESTRAL LAST INJECTION)
     Dates: start: 20050711, end: 20050711
  2. DEPO-PROVERA [Suspect]
     Indication: CONTRACEPTION
     Dosage: 150 MG (150 MG, TRIMESTRAL 1ST INJECTION); 150 MG (150 MG, TRIMESTRAL LAST INJECTION)
     Dates: start: 20051111, end: 20051111

REACTIONS (4)
  - AMENORRHOEA [None]
  - METRORRHAGIA [None]
  - RASH PAPULAR [None]
  - VARICOSE VEIN [None]
